FAERS Safety Report 7985461-3 (Version None)
Quarter: 2011Q4

REPORT INFORMATION
  Report Type: 
  Country: None (occurrence: None)
  Receive Date: 20111214
  Receipt Date: 20111129
  Transmission Date: 20120403
  Serious: No
  Sender: FDA-Public Use
  Company Number: B0767899A

PATIENT
  Age: 29 Year
  Sex: Female

DRUGS (1)
  1. ACYCLOVIR [Suspect]
     Indication: GENITAL HERPES
     Dosage: ORAL
     Route: 048

REACTIONS (8)
  - PERITONEAL DIALYSIS [None]
  - HAEMODIALYSIS [None]
  - RHABDOMYOLYSIS [None]
  - RENAL FAILURE ACUTE [None]
  - URAEMIC ENCEPHALOPATHY [None]
  - ASTHENIA [None]
  - VOMITING [None]
  - BLOOD SODIUM DECREASED [None]
